FAERS Safety Report 5461091-2 (Version None)
Quarter: 2007Q3

REPORT INFORMATION
  Report Type: 
  Country: None (occurrence: None)
  Receive Date: 20070920
  Receipt Date: 20070917
  Transmission Date: 20080115
  Serious: Yes (Other)
  Sender: FDA-Public Use
  Company Number: FR-RB-005464-07

PATIENT
  Age: 41 Year
  Sex: Male

DRUGS (2)
  1. SUBUTEX [Suspect]
     Indication: DRUG THERAPY
     Dosage: INITIATED SUBUTEX 16 MG QD BY SNIFFING ROUTE IN 1996.
     Route: 055
     Dates: start: 19960101
  2. SUBUTEX [Suspect]
     Dosage: SUBUTEX DOSAGE WAS REDUCED ON 27-AUG-2007, DOSAGE AND FREQUENCY UNKNOWN.
     Route: 060
     Dates: start: 20070827

REACTIONS (2)
  - INTENTIONAL DRUG MISUSE [None]
  - LYMPHADENOPATHY [None]
